FAERS Safety Report 10048073 (Version 3)
Quarter: 2014Q2

REPORT INFORMATION
  Report Type: Report from Study
  Country: AU (occurrence: AU)
  Receive Date: 20140331
  Receipt Date: 20140416
  Transmission Date: 20141212
  Serious: Yes (Other)
  Sender: FDA-Public Use
  Company Number: AU-VERTEX PHARMACEUTICALS INC-2014-001668

PATIENT
  Age: 59 Year
  Sex: Male
  Weight: 63.4 kg

DRUGS (5)
  1. TELAPREVIR [Suspect]
     Indication: HEPATITIS C
     Dosage: 1119 MG, BID
     Route: 065
     Dates: start: 20140131, end: 20140324
  2. PEGYLATED INTERFERON [Suspect]
     Indication: HEPATITIS C
     Dosage: 180 ?G, QW
     Route: 058
     Dates: start: 20140131
  3. RIBAVIRIN [Suspect]
     Indication: HEPATITIS C
     Dosage: 600 MG, UNK
     Route: 058
     Dates: start: 20140308
  4. RIBAVIRIN [Suspect]
     Dosage: 1000 MG, UNK
     Route: 058
     Dates: start: 20140131, end: 20140307
  5. PHENERGAN [Suspect]
     Indication: PRODUCT USED FOR UNKNOWN INDICATION
     Dosage: UNK

REACTIONS (7)
  - Rash [Unknown]
  - Drug eruption [Not Recovered/Not Resolved]
  - Insomnia [Unknown]
  - Blood count abnormal [Unknown]
  - Neutrophilia [Unknown]
  - Feeling hot [Unknown]
  - Dry mouth [Unknown]
